FAERS Safety Report 11720348 (Version 3)
Quarter: 2015Q4

REPORT INFORMATION
  Report Type: Spontaneous
  Country: PL (occurrence: PL)
  Receive Date: 20151110
  Receipt Date: 20151213
  Transmission Date: 20160304
  Serious: Yes (Hospitalization)
  Sender: FDA-Public Use
  Company Number: PL-ASTRAZENECA-2015SF06113

PATIENT
  Sex: Female

DRUGS (3)
  1. INSULIN [Concomitant]
     Active Substance: INSULIN NOS
  2. FORXIGA [Suspect]
     Active Substance: DAPAGLIFLOZIN
     Route: 048
  3. METFORMIN [Concomitant]
     Active Substance: METFORMIN HYDROCHLORIDE

REACTIONS (2)
  - Biliary colic [Unknown]
  - Blood ketone body increased [Unknown]
